FAERS Safety Report 4614330-1 (Version None)
Quarter: 2005Q1

REPORT INFORMATION
  Report Type: 
  Country: None (occurrence: None)
  Receive Date: 20050315
  Receipt Date: 20050303
  Transmission Date: 20050727
  Serious: Yes (Death, Other)
  Sender: FDA-Public Use
  Company Number: 2005022758

PATIENT
  Age: 56 Year
  Sex: Female
  Weight: 136.0791 kg

DRUGS (4)
  1. CELEBREX [Suspect]
     Indication: ARTHRALGIA
     Dates: start: 20020101
  2. GLYBURIDE [Concomitant]
  3. ANTIHYPERTENSIVES (ANTIHYPERTENSIVES) [Concomitant]
  4. DIURETICS (DIURETICS) [Concomitant]

REACTIONS (4)
  - CARDIAC FAILURE [None]
  - FEELING ABNORMAL [None]
  - RENAL FAILURE [None]
  - WEIGHT DECREASED [None]
